FAERS Safety Report 17409624 (Version 1)
Quarter: 2020Q1

REPORT INFORMATION
  Report Type: Spontaneous
  Country: BR (occurrence: BR)
  Receive Date: 20200212
  Receipt Date: 20200212
  Transmission Date: 20200409
  Serious: Yes (Death, Hospitalization, Other)
  Sender: FDA-Public Use
  Company Number: BR-ALEXION PHARMACEUTICALS INC.-A202001924

PATIENT
  Age: 35 Year
  Sex: Male

DRUGS (3)
  1. SOLIRIS [Suspect]
     Active Substance: ECULIZUMAB
     Indication: PAROXYSMAL NOCTURNAL HAEMOGLOBINURIA
     Dosage: UNK
     Route: 065
     Dates: start: 201412
  2. SOLIRIS [Suspect]
     Active Substance: ECULIZUMAB
     Dosage: 1200 MG, UNK
     Route: 065
     Dates: start: 201505
  3. PREDNISONE. [Concomitant]
     Active Substance: PREDNISONE
     Indication: PANCYTOPENIA
     Dosage: UNK
     Route: 065

REACTIONS (7)
  - Ill-defined disorder [Fatal]
  - Haemolysis [Unknown]
  - Peripheral artery thrombosis [Unknown]
  - Treatment noncompliance [Unknown]
  - Pancytopenia [Unknown]
  - Aplastic anaemia [Unknown]
  - Septic shock [Unknown]

NARRATIVE: CASE EVENT DATE: 2016
